FAERS Safety Report 4952045-0 (Version None)
Quarter: 2006Q1

REPORT INFORMATION
  Report Type: 
  Country: None (occurrence: None)
  Receive Date: 20060322
  Receipt Date: 20060322
  Transmission Date: 20060701
  Serious: Yes (Death)
  Sender: FDA-Public Use
  Company Number: None

PATIENT
  Age: 67 Year
  Sex: Male

DRUGS (1)
  1. AMIODARONE 200 MG [Suspect]
     Dosage: 1 DAILY

REACTIONS (12)
  - AMMONIA INCREASED [None]
  - CONFUSIONAL STATE [None]
  - FATIGUE [None]
  - HAEMORRHAGE [None]
  - HEPATOCELLULAR DAMAGE [None]
  - INTESTINAL ISCHAEMIA [None]
  - NAUSEA [None]
  - RENAL DISORDER [None]
  - RENAL FAILURE [None]
  - THYROID DISORDER [None]
  - TREMOR [None]
  - VERTIGO [None]
